FAERS Safety Report 13906978 (Version 1)
Quarter: 2017Q3

REPORT INFORMATION
  Report Type: Report from Study
  Country: US (occurrence: US)
  Receive Date: 20170825
  Receipt Date: 20170825
  Transmission Date: 20171127
  Serious: Yes (Other)
  Sender: FDA-Public Use
  Company Number: US-KAMADA LIMITED-2017US000229

PATIENT

DRUGS (6)
  1. DIGOXIN                            /00545901/ [Concomitant]
     Active Substance: DIGOXIN
  2. ELIQUIS [Concomitant]
     Active Substance: APIXABAN
  3. TIKOSYN [Concomitant]
     Active Substance: DOFETILIDE
  4. GLASSIA [Suspect]
     Active Substance: .ALPHA.1-PROTEINASE INHIBITOR HUMAN
     Indication: ALPHA-1 ANTI-TRYPSIN DEFICIENCY
     Dosage: UNK, 1/WEEK
     Route: 042
     Dates: start: 2009
  5. ALBUTEROL                          /00139501/ [Concomitant]
     Active Substance: ALBUTEROL
  6. DILTIAZEM                          /00489702/ [Concomitant]
     Active Substance: DILTIAZEM

REACTIONS (4)
  - Pharyngitis streptococcal [Recovered/Resolved]
  - Bronchitis [Recovered/Resolved]
  - Drug dose omission [Unknown]
  - Acute sinusitis [Unknown]

NARRATIVE: CASE EVENT DATE: 20161216
